FAERS Safety Report 6365091-X (Version None)
Quarter: 2009Q3

REPORT INFORMATION
  Report Type: 
  Country: None (occurrence: None)
  Receive Date: 20090919
  Receipt Date: 20090806
  Transmission Date: 20100115
  Serious: No
  Sender: FDA-Public Use
  Company Number: US-ABBOTT-09P-163-0589732-00

PATIENT
  Weight: 71.278 kg

DRUGS (3)
  1. HUMIRA [Suspect]
     Indication: PSORIASIS
     Route: 058
     Dates: start: 20080801
  2. HUMIRA [Suspect]
     Indication: PSORIASIS
     Route: 058
     Dates: end: 20090727
  3. HUMIRA [Suspect]
     Route: 058
     Dates: start: 20090806

REACTIONS (3)
  - BURNING SENSATION [None]
  - INJECTION SITE PAIN [None]
  - PRURITUS [None]
